FAERS Safety Report 6399947-9 (Version None)
Quarter: 2009Q4

REPORT INFORMATION
  Report Type: 
  Country: None (occurrence: None)
  Receive Date: 20091008
  Receipt Date: 20091008
  Transmission Date: 20100525
  Serious: Yes (Life-Threatening, Hospitalization)
  Sender: FDA-Public Use
  Company Number: None

PATIENT
  Age: 51 Year
  Sex: Female
  Weight: 108.8633 kg

DRUGS (1)
  1. HUMIRA [Suspect]
     Indication: RHEUMATOID ARTHRITIS
     Dosage: INJECTION EVERY 2 WEEKS UNK INJECTION ONLY
     Dates: start: 20090905, end: 20090905

REACTIONS (8)
  - APPARENT DEATH [None]
  - FATIGUE [None]
  - GAIT DISTURBANCE [None]
  - HAEMATOMA [None]
  - IMPAIRED WORK ABILITY [None]
  - RENAL FAILURE [None]
  - THROMBOSIS [None]
  - THYROID DISORDER [None]
